FAERS Safety Report 6218107-5 (Version None)
Quarter: 2009Q2

REPORT INFORMATION
  Report Type: 
  Country: None (occurrence: None)
  Receive Date: 20090608
  Receipt Date: 20090527
  Transmission Date: 20091009
  Serious: Yes (Other)
  Sender: FDA-Public Use
  Company Number: PHEH2007US15448

PATIENT
  Sex: Female
  Weight: 97.052 kg

DRUGS (5)
  1. ZOMETA [Suspect]
     Indication: BONE NEOPLASM MALIGNANT
     Dosage: 4 MG, QMO
     Route: 042
  2. AREDIA [Suspect]
     Indication: METASTASES TO BONE
     Route: 042
  3. DEXAMETHASONE [Concomitant]
  4. PERIDEX [Concomitant]
  5. CHEMOTHERAPEUTICS NOS [Concomitant]

REACTIONS (23)
  - ABSCESS DRAINAGE [None]
  - ANHEDONIA [None]
  - ANXIETY [None]
  - BACK PAIN [None]
  - BONE DISORDER [None]
  - BONE PAIN [None]
  - COMPRESSION FRACTURE [None]
  - DENTAL CARIES [None]
  - HYPOTHYROIDISM [None]
  - IMPAIRED HEALING [None]
  - INJURY [None]
  - INTERVERTEBRAL DISC PROTRUSION [None]
  - MUSCULOSKELETAL DISCOMFORT [None]
  - OSTEOARTHRITIS [None]
  - OSTEONECROSIS [None]
  - OSTEOPENIA [None]
  - OSTEOPOROSIS [None]
  - PAIN [None]
  - PAIN IN EXTREMITY [None]
  - RENAL FAILURE [None]
  - RESTLESS LEGS SYNDROME [None]
  - TOOTH DISORDER [None]
  - TOOTH EXTRACTION [None]
